FAERS Safety Report 5724840-1 (Version None)
Quarter: 2008Q2

REPORT INFORMATION
  Report Type: 
  Country: None (occurrence: None)
  Receive Date: 20080429
  Receipt Date: 20080418
  Transmission Date: 20081010
  Serious: Yes (Other)
  Sender: FDA-Public Use
  Company Number: 2008JP001992

PATIENT
  Age: 49 Year
  Sex: Male

DRUGS (2)
  1. PROGRAF [Suspect]
     Indication: MYASTHENIA GRAVIS
     Dosage: 3 MG, D, ORAL
     Route: 048
  2. AMPHOTERICIN B [Concomitant]

REACTIONS (1)
  - RHABDOMYOLYSIS [None]
